FAERS Safety Report 9678471 (Version 3)
Quarter: 2014Q2

REPORT INFORMATION
  Report Type: Report from Study
  Country: DE (occurrence: DE)
  Receive Date: 20131108
  Receipt Date: 20140515
  Transmission Date: 20141212
  Serious: Yes (Hospitalization)
  Sender: FDA-Public Use
  Company Number: DE-BRISTOL-MYERS SQUIBB COMPANY-19699727

PATIENT
  Age: 53 Year
  Sex: Male

DRUGS (3)
  1. IPILIMUMAB [Suspect]
     Indication: METASTATIC MALIGNANT MELANOMA
     Dosage: 05JUL13-315MG?26JUL13-330MG
     Route: 042
     Dates: start: 20130614
  2. DEXAMETHASONE [Concomitant]
     Dates: start: 20131022
  3. OMEPRAZOLE [Concomitant]
     Dates: start: 20131022

REACTIONS (1)
  - Convulsion [Recovered/Resolved]
